FAERS Safety Report 8233767-5 (Version None)
Quarter: 2012Q1

REPORT INFORMATION
  Report Type: 
  Country: None (occurrence: None)
  Receive Date: 20120307
  Receipt Date: 20110412
  Transmission Date: 20120608
  Serious: Yes (Hospitalization)
  Sender: FDA-Public Use
  Company Number: PHHY2011US30671

PATIENT
  Age: 77 Year
  Sex: Male

DRUGS (1)
  1. AFINITOR [Suspect]
     Indication: MALIGNANT URINARY TRACT NEOPLASM
     Dosage: 10 MG, DAILY, ORAL
     Route: 048
     Dates: start: 20101228, end: 20110325

REACTIONS (1)
  - ALVEOLITIS ALLERGIC [None]
